FAERS Safety Report 14717764 (Version 3)
Quarter: 2022Q3

REPORT INFORMATION
  Report Type: Spontaneous
  Country: US (occurrence: US)
  Receive Date: 20180404
  Receipt Date: 20220911
  Transmission Date: 20221027
  Serious: No
  Sender: FDA-Public Use
  Company Number: US-SA-2018SA027170

PATIENT
  Age: 35 Year
  Sex: Male

DRUGS (1)
  1. DUPIXENT [Suspect]
     Active Substance: DUPILUMAB
     Indication: Dermatitis atopic
     Dosage: 300 MG,QOW
     Route: 058
     Dates: start: 20170802

REACTIONS (6)
  - Weight increased [Unknown]
  - Acne [Unknown]
  - Pain [Unknown]
  - Pruritus [Unknown]
  - Lacrimation increased [Unknown]
  - Dermatitis contact [Unknown]
